FAERS Safety Report 25173492 (Version 1)
Quarter: 2025Q2

REPORT INFORMATION
  Report Type: Spontaneous
  Country: US (occurrence: US)
  Receive Date: 20250408
  Receipt Date: 20250408
  Transmission Date: 20250716
  Serious: Yes (Other)
  Sender: MYLAN
  Company Number: US-MYLANLABS-2025M1030041

PATIENT
  Age: 35 Year
  Sex: Female

DRUGS (28)
  1. LEVETIRACETAM [Suspect]
     Active Substance: LEVETIRACETAM
     Indication: Generalised tonic-clonic seizure
  2. LEVETIRACETAM [Suspect]
     Active Substance: LEVETIRACETAM
     Route: 065
  3. LEVETIRACETAM [Suspect]
     Active Substance: LEVETIRACETAM
     Route: 065
  4. LEVETIRACETAM [Suspect]
     Active Substance: LEVETIRACETAM
  5. SERTRALINE [Interacting]
     Active Substance: SERTRALINE HYDROCHLORIDE
     Indication: Generalised anxiety disorder
     Dosage: 50 MILLIGRAM, QD (THE DOSE WAS INCREASED BY 50MG ON A WEEKLY BASIS WITH THE INTENTION TO TARGET 200 MG/DAY BY THE FOURTH WEEK)
  6. SERTRALINE [Interacting]
     Active Substance: SERTRALINE HYDROCHLORIDE
     Dosage: 50 MILLIGRAM, QD (THE DOSE WAS INCREASED BY 50MG ON A WEEKLY BASIS WITH THE INTENTION TO TARGET 200 MG/DAY BY THE FOURTH WEEK)
  7. SERTRALINE [Interacting]
     Active Substance: SERTRALINE HYDROCHLORIDE
     Dosage: 50 MILLIGRAM, QD (THE DOSE WAS INCREASED BY 50MG ON A WEEKLY BASIS WITH THE INTENTION TO TARGET 200 MG/DAY BY THE FOURTH WEEK)
     Route: 065
  8. SERTRALINE [Interacting]
     Active Substance: SERTRALINE HYDROCHLORIDE
     Dosage: 50 MILLIGRAM, QD (THE DOSE WAS INCREASED BY 50MG ON A WEEKLY BASIS WITH THE INTENTION TO TARGET 200 MG/DAY BY THE FOURTH WEEK)
     Route: 065
  9. SERTRALINE [Interacting]
     Active Substance: SERTRALINE HYDROCHLORIDE
     Dosage: 150 MILLIGRAM, QD
  10. SERTRALINE [Interacting]
     Active Substance: SERTRALINE HYDROCHLORIDE
     Dosage: 150 MILLIGRAM, QD
  11. SERTRALINE [Interacting]
     Active Substance: SERTRALINE HYDROCHLORIDE
     Dosage: 150 MILLIGRAM, QD
     Route: 065
  12. SERTRALINE [Interacting]
     Active Substance: SERTRALINE HYDROCHLORIDE
     Dosage: 150 MILLIGRAM, QD
     Route: 065
  13. OXCARBAZEPINE [Interacting]
     Active Substance: OXCARBAZEPINE
     Indication: Generalised tonic-clonic seizure
     Dosage: 1800 MILLIGRAM, QD
  14. OXCARBAZEPINE [Interacting]
     Active Substance: OXCARBAZEPINE
     Dosage: 1800 MILLIGRAM, QD
     Route: 065
  15. OXCARBAZEPINE [Interacting]
     Active Substance: OXCARBAZEPINE
     Dosage: 1800 MILLIGRAM, QD
     Route: 065
  16. OXCARBAZEPINE [Interacting]
     Active Substance: OXCARBAZEPINE
     Dosage: 1800 MILLIGRAM, QD
  17. CLOBAZAM [Concomitant]
     Active Substance: CLOBAZAM
     Indication: Generalised tonic-clonic seizure
     Dosage: 15 MILLIGRAM, QD
  18. CLOBAZAM [Concomitant]
     Active Substance: CLOBAZAM
     Dosage: 15 MILLIGRAM, QD
     Route: 065
  19. CLOBAZAM [Concomitant]
     Active Substance: CLOBAZAM
     Dosage: 15 MILLIGRAM, QD
     Route: 065
  20. CLOBAZAM [Concomitant]
     Active Substance: CLOBAZAM
     Dosage: 15 MILLIGRAM, QD
  21. CLONAZEPAM [Concomitant]
     Active Substance: CLONAZEPAM
     Indication: Generalised tonic-clonic seizure
     Dosage: UNK, Q3W
  22. CLONAZEPAM [Concomitant]
     Active Substance: CLONAZEPAM
     Dosage: UNK, Q3W
     Route: 065
  23. CLONAZEPAM [Concomitant]
     Active Substance: CLONAZEPAM
     Dosage: UNK, Q3W
     Route: 065
  24. CLONAZEPAM [Concomitant]
     Active Substance: CLONAZEPAM
     Dosage: UNK, Q3W
  25. CARBAMAZEPINE [Concomitant]
     Active Substance: CARBAMAZEPINE
     Indication: Generalised tonic-clonic seizure
  26. CARBAMAZEPINE [Concomitant]
     Active Substance: CARBAMAZEPINE
     Route: 065
  27. CARBAMAZEPINE [Concomitant]
     Active Substance: CARBAMAZEPINE
     Route: 065
  28. CARBAMAZEPINE [Concomitant]
     Active Substance: CARBAMAZEPINE

REACTIONS (3)
  - Major depression [Recovered/Resolved]
  - Hyponatraemia [Recovered/Resolved]
  - Drug interaction [Recovered/Resolved]
